FAERS Safety Report 6699853-6 (Version None)
Quarter: 2010Q2

REPORT INFORMATION
  Report Type: 
  Country: None (occurrence: None)
  Receive Date: 20100428
  Receipt Date: 20100414
  Transmission Date: 20101027
  Serious: Yes (Hospitalization, Other)
  Sender: FDA-Public Use
  Company Number: DE-RANBAXY-2010RR-33305

PATIENT
  Age: 56 Year
  Sex: Male
  Weight: 74 kg

DRUGS (10)
  1. PARACETAMOL [Suspect]
     Dosage: 500 MG, UNK
     Route: 048
     Dates: start: 20080725, end: 20080805
  2. CIPROBAY, 250MG, FILMTABL, BAYER [Suspect]
     Dosage: 250 MG, BID
     Route: 048
     Dates: start: 20080729, end: 20080807
  3. REMERGIL SOLTAB, 15/30 MG, SCHMELZTABL, ORGANON [Suspect]
     Indication: DEPRESSION
     Dosage: UNK
     Route: 048
     Dates: start: 20080723, end: 20080807
  4. FLUOXETIN, 20MG, TABL [Concomitant]
     Indication: DEPRESSION
     Dosage: 20 MG, QD
     Route: 048
     Dates: start: 20080723, end: 20080729
  5. ENAHEXAL, 10MG, TABL, HEXAL [Concomitant]
     Dosage: UNK
     Route: 048
     Dates: start: 20080723
  6. PANTOZOL, 40 MG, TABL, NYCOMED [Concomitant]
     Dosage: 40 MG, QD
     Route: 048
     Dates: start: 20080723
  7. REQUIP, 0.25 MG, FILMTABL, GSK [Concomitant]
     Indication: PARKINSON'S DISEASE
     Dosage: UNK
     Route: 048
     Dates: start: 20080725
  8. TAVOR/TAVOR EXPIDET, TABL/TAFELCHEN, WYETH [Concomitant]
     Dosage: UNK
     Route: 048
     Dates: start: 20080722
  9. IBUHEXAL, 400 MG FILMTABL, HEXAL [Concomitant]
     Dosage: 400 MG, UNK
     Route: 048
     Dates: start: 20080726, end: 20080815
  10. OMNIC OCAS, 0.4 MG, RETARDTABL, ASTELLAS [Concomitant]
     Indication: BENIGN PROSTATIC HYPERPLASIA
     Dosage: 400 UG, QD
     Route: 048
     Dates: start: 20080730

REACTIONS (1)
  - HEPATITIS ACUTE [None]
